FAERS Safety Report 5595976-3 (Version None)
Quarter: 2008Q1

REPORT INFORMATION
  Report Type: 
  Country: None (occurrence: None)
  Receive Date: 20080118
  Receipt Date: 20080115
  Transmission Date: 20080703
  Serious: Yes (Disabling)
  Sender: FDA-Public Use
  Company Number: KR-ASTRAZENECA-2008AP00400

PATIENT
  Age: 26120 Day
  Sex: Male

DRUGS (6)
  1. IRESSA [Suspect]
     Indication: NON-SMALL CELL LUNG CANCER
     Route: 048
     Dates: start: 20070611, end: 20070907
  2. FEROBA [Concomitant]
     Indication: BLOOD IRON
     Route: 048
     Dates: start: 20070827, end: 20070907
  3. ERDOS [Concomitant]
     Indication: ANTITUSSIVE THERAPY
     Route: 048
     Dates: start: 20061220, end: 20070907
  4. MYPOL [Concomitant]
     Indication: ANALGESIC THERAPY
     Route: 048
     Dates: start: 20070510, end: 20070907
  5. LEVOTUSS SYRUP [Concomitant]
     Indication: ANTITUSSIVE THERAPY
     Route: 048
     Dates: start: 20070827, end: 20070907
  6. UCERAX [Concomitant]
     Indication: NEUROSIS
     Route: 048
     Dates: start: 20070827, end: 20070907

REACTIONS (1)
  - CEREBRAL INFARCTION [None]
